FAERS Safety Report 6023689-2 (Version None)
Quarter: 2008Q4

REPORT INFORMATION
  Report Type: 
  Country: None (occurrence: None)
  Receive Date: 20081226
  Receipt Date: 20081226
  Transmission Date: 20090506
  Serious: Yes (Hospitalization)
  Sender: FDA-Public Use
  Company Number: None

PATIENT
  Age: 69 Year
  Sex: Male
  Weight: 81.4 kg

DRUGS (15)
  1. NELFINAVIR 3000 MG B.I.D. [Suspect]
     Indication: LIPOSARCOMA
     Dosage: 3000 B.I.D. PO
     Route: 048
     Dates: start: 20080731, end: 20081219
  2. ALPRAZOLAM [Concomitant]
  3. ASPIRIN [Concomitant]
  4. DIOVAN [Concomitant]
  5. LOVAZA [Concomitant]
  6. GLUCOSAMINE [Concomitant]
  7. MELOXICAM [Concomitant]
  8. PREVACID [Concomitant]
  9. TOPROL-XL [Concomitant]
  10. VERAPAMIL [Concomitant]
  11. VIAGRA [Concomitant]
  12. COUMADIN [Concomitant]
  13. MULTI-VITAMIN [Concomitant]
  14. VITAMIN D [Concomitant]
  15. CLARITIN [Concomitant]

REACTIONS (1)
  - DYSPNOEA [None]
